FAERS Safety Report 20054010 (Version 1)
Quarter: 2021Q4

REPORT INFORMATION
  Report Type: Spontaneous
  Country: DE (occurrence: DE)
  Receive Date: 20211110
  Receipt Date: 20211110
  Transmission Date: 20220304
  Serious: Yes (Other)
  Sender: FDA-Public Use
  Company Number: DE-PFIZER INC-202101463717

PATIENT
  Age: 33 Year

DRUGS (3)
  1. PACLITAXEL [Suspect]
     Active Substance: PACLITAXEL
     Indication: Chemotherapy
     Dosage: UNK
     Dates: start: 201807
  2. ZOLEDRONIC ACID [Suspect]
     Active Substance: ZOLEDRONIC ACID
     Indication: Chemotherapy
     Dosage: Q3M
     Dates: start: 201807
  3. BEVACIZUMAB [Suspect]
     Active Substance: BEVACIZUMAB
     Indication: Chemotherapy
     Dosage: UNK, EVERY 3 WEEKS
     Dates: start: 201807

REACTIONS (2)
  - Nail toxicity [Unknown]
  - Off label use [Unknown]

NARRATIVE: CASE EVENT DATE: 20180701
